FAERS Safety Report 7310734-7 (Version None)
Quarter: 2011Q1

REPORT INFORMATION
  Report Type: 
  Country: None (occurrence: None)
  Receive Date: 20110224
  Receipt Date: 20110210
  Transmission Date: 20110831
  Serious: Yes (Other)
  Sender: FDA-Public Use
  Company Number: PHHY2011US12499

PATIENT
  Sex: Male
  Weight: 195 kg

DRUGS (1)
  1. VOLTAREN [Suspect]
     Indication: PAIN
     Dosage: 2GM OR LESS TWICE A DAY
     Route: 061
     Dates: start: 20110209, end: 20110209

REACTIONS (1)
  - FREQUENT BOWEL MOVEMENTS [None]
